FAERS Safety Report 6051734-7 (Version None)
Quarter: 2009Q1

REPORT INFORMATION
  Report Type: 
  Country: None (occurrence: None)
  Receive Date: 20090121
  Receipt Date: 20090121
  Transmission Date: 20090719
  Serious: Yes (Other)
  Sender: FDA-Public Use
  Company Number: None

PATIENT
  Age: 9 Year
  Sex: Male
  Weight: 65.7716 kg

DRUGS (1)
  1. PROAIR HFA [Suspect]
     Indication: ASTHMA
     Dosage: 2PUFFS EVERY 4-6 HOURS OTHER
     Route: 050
     Dates: start: 20080201, end: 20080501

REACTIONS (2)
  - MANIA [None]
  - PRODUCT QUALITY ISSUE [None]
